FAERS Safety Report 4453107-7 (Version None)
Quarter: 2004Q3

REPORT INFORMATION
  Report Type: 
  Country: None (occurrence: None)
  Receive Date: 20040813
  Receipt Date: 20040421
  Transmission Date: 20050211
  Serious: No
  Sender: FDA-Public Use
  Company Number: S04-USA-03458-01

PATIENT
  Age: 75 Year
  Sex: Male

DRUGS (9)
  1. NAMENDA [Suspect]
     Indication: MEMORY IMPAIRMENT
     Dosage: 5 MG QD PO
     Route: 048
     Dates: start: 20040418
  2. DEPAKOTE [Concomitant]
  3. WELLBUTRIN [Concomitant]
  4. ISOSORBIDE [Concomitant]
  5. FUROSEMIDE [Concomitant]
  6. PRAVACHOL [Concomitant]
  7. PROTONIX [Concomitant]
  8. COMBIVENT [Concomitant]
  9. PREDNISONE [Concomitant]

REACTIONS (2)
  - ASTHENIA [None]
  - FALL [None]
